FAERS Safety Report 13953089 (Version 2)
Quarter: 2018Q3

REPORT INFORMATION
  Report Type: Spontaneous
  Country: AR (occurrence: AR)
  Receive Date: 20170911
  Receipt Date: 20180822
  Transmission Date: 20181010
  Serious: Yes (Death, Other)
  Sender: FDA-Public Use
  Company Number: AR-AMGEN-ARGSP2017136004

PATIENT
  Age: 74 Year
  Sex: Male

DRUGS (4)
  1. LOTRIAL [Concomitant]
     Active Substance: ENALAPRIL MALEATE
     Dosage: UNK
  2. EPAMIN [Concomitant]
     Active Substance: PHENYTOIN SODIUM
     Dosage: UNK
  3. NIMODIPINA [Concomitant]
     Dosage: UNK
  4. ENBREL [Suspect]
     Active Substance: ETANERCEPT
     Indication: PSORIASIS
     Dosage: 50 MG, QWK
     Route: 065
     Dates: start: 20080516

REACTIONS (2)
  - Death [Fatal]
  - Cerebrovascular accident [Unknown]

NARRATIVE: CASE EVENT DATE: 2017
